FAERS Safety Report 15187429 (Version 1)
Quarter: 2018Q3

REPORT INFORMATION
  Report Type: Report from Study
  Country: US (occurrence: US)
  Receive Date: 20180723
  Receipt Date: 20180723
  Transmission Date: 20181010
  Serious: No
  Sender: FDA-Public Use
  Company Number: US-EXELIXIS-CABO-18012151

PATIENT
  Sex: Male

DRUGS (14)
  1. IRON [Concomitant]
     Active Substance: IRON
  2. FENTANYL. [Concomitant]
     Active Substance: FENTANYL
  3. VITAMIN B12 [Concomitant]
     Active Substance: CYANOCOBALAMIN
  4. VALSARTAN. [Concomitant]
     Active Substance: VALSARTAN
  5. MULTIVITAMINS [Concomitant]
     Active Substance: VITAMINS
  6. LANSOPRAZOLE. [Concomitant]
     Active Substance: LANSOPRAZOLE
  7. CABOMETYX [Suspect]
     Active Substance: CABOZANTINIB S-MALATE
     Indication: RENAL CANCER
     Dosage: 60 MG, QD
     Route: 048
     Dates: start: 20160624
  8. NORCO [Concomitant]
     Active Substance: ACETAMINOPHEN\HYDROCODONE BITARTRATE
  9. VITAMIN D3 [Concomitant]
     Active Substance: CHOLECALCIFEROL
  10. CABOMETYX [Suspect]
     Active Substance: CABOZANTINIB S-MALATE
     Dosage: 40 MG, MON, WED, FRI ONLY
     Route: 048
     Dates: start: 20170527
  11. CARVEDILOL. [Concomitant]
     Active Substance: CARVEDILOL
  12. ONDANSETRON [Concomitant]
     Active Substance: ONDANSETRON
  13. VITAMIN B6 [Concomitant]
     Active Substance: PYRIDOXINE HYDROCHLORIDE
  14. DONEPEZIL HCL [Concomitant]
     Active Substance: DONEPEZIL HYDROCHLORIDE

REACTIONS (1)
  - Constipation [Unknown]
